FAERS Safety Report 4619884-7 (Version None)
Quarter: 2005Q1

REPORT INFORMATION
  Report Type: 
  Country: None (occurrence: None)
  Receive Date: 20050328
  Receipt Date: 20050318
  Transmission Date: 20050727
  Serious: Yes (Other)
  Sender: FDA-Public Use
  Company Number: FR-SOLVAY-00305000915

PATIENT
  Sex: Female
  Weight: 0.75 kg

DRUGS (2)
  1. ROWASA [Suspect]
     Indication: COLITIS ULCERATIVE
     Dosage: DAILY DOSE: 2 GRAM(S)
     Dates: start: 20041101
  2. PENTASA [Suspect]
     Indication: COLITIS ULCERATIVE
     Dosage: DAILY DOSE: 2 GRAM(S)

REACTIONS (3)
  - BLOOD CREATININE INCREASED [None]
  - FOETAL GROWTH RETARDATION [None]
  - PREMATURE BABY [None]
